FAERS Safety Report 6235544-3 (Version None)
Quarter: 2009Q2

REPORT INFORMATION
  Report Type: 
  Country: None (occurrence: None)
  Receive Date: 20090618
  Receipt Date: 20081120
  Transmission Date: 20091009
  Serious: No
  Sender: FDA-Public Use
  Company Number: US-ASTRAZENECA-2008UW26084

PATIENT
  Age: 9 Year
  Sex: Male

DRUGS (1)
  1. RHINOCORT [Suspect]
     Indication: NASAL CONGESTION
     Dosage: 1 SPRAY PER NOSTRIL TWO TIMES A DAY FOR 1 WEEK
     Route: 045
     Dates: start: 20081101

REACTIONS (2)
  - DRUG INEFFECTIVE [None]
  - HEADACHE [None]
